FAERS Safety Report 13753221 (Version 1)
Quarter: 2017Q3

REPORT INFORMATION
  Report Type: Spontaneous
  Country: CA (occurrence: CA)
  Receive Date: 20170713
  Receipt Date: 20170713
  Transmission Date: 20171127
  Serious: Yes (Hospitalization)
  Sender: FDA-Public Use
  Company Number: CA-JNJFOC-20170707229

PATIENT
  Age: 59 Year
  Sex: Male
  Weight: 87 kg

DRUGS (1)
  1. IMBRUVICA [Suspect]
     Active Substance: IBRUTINIB
     Indication: CHRONIC LYMPHOCYTIC LEUKAEMIA
     Route: 048

REACTIONS (6)
  - Back pain [Unknown]
  - Mycobacterium tuberculosis complex test positive [Unknown]
  - Biopsy [Unknown]
  - Nuclear magnetic resonance imaging [Unknown]
  - Central nervous system mass [Unknown]
  - Pleural effusion [Unknown]
